FAERS Safety Report 23434264 (Version 2)
Quarter: 2024Q2

REPORT INFORMATION
  Report Type: Spontaneous
  Country: US (occurrence: US)
  Receive Date: 20240123
  Receipt Date: 20240607
  Transmission Date: 20240715
  Serious: No
  Sender: FDA-Public Use
  Company Number: US-BAYER-2024A012260

PATIENT
  Age: 83 Year
  Sex: Male

DRUGS (2)
  1. NUBEQA [Suspect]
     Active Substance: DAROLUTAMIDE
     Indication: Hormone-refractory prostate cancer
     Dosage: UNK
     Dates: start: 202306
  2. VITAMIN D [Suspect]
     Active Substance: VITAMIN D NOS
     Dosage: UNK

REACTIONS (6)
  - Rash [None]
  - Pruritus [None]
  - Rash [Recovered/Resolved]
  - Pruritus [Recovered/Resolved]
  - Rash [Not Recovered/Not Resolved]
  - Pruritus [Not Recovered/Not Resolved]

NARRATIVE: CASE EVENT DATE: 20230701
